FAERS Safety Report 18713805 (Version 4)
Quarter: 2021Q2

REPORT INFORMATION
  Report Type: Spontaneous
  Country: MT (occurrence: MT)
  Receive Date: 20210107
  Receipt Date: 20210512
  Transmission Date: 20210717
  Serious: Yes (Hospitalization, Other)
  Sender: FDA-Public Use
  Company Number: MT-BAYER-2021-000200

PATIENT
  Age: 43 Year
  Sex: Female

DRUGS (1)
  1. LEVONORGESTREL IUS [UNKNOWN] [Suspect]
     Active Substance: LEVONORGESTREL
     Dosage: UNKNOWN ?G PER DAY CONTINUOUSLY
     Route: 015

REACTIONS (11)
  - Oedema peripheral [Unknown]
  - Pelvic abscess [Not Recovered/Not Resolved]
  - Sepsis [Not Recovered/Not Resolved]
  - Endometriosis [None]
  - Actinomycosis [Not Recovered/Not Resolved]
  - Polycystic ovaries [None]
  - Pelvic inflammatory disease [Not Recovered/Not Resolved]
  - Salpingitis [None]
  - Pleural effusion [Not Recovered/Not Resolved]
  - Acute respiratory distress syndrome [Not Recovered/Not Resolved]
  - Atelectasis [None]
